FAERS Safety Report 6178658-9 (Version None)
Quarter: 2009Q2

REPORT INFORMATION
  Report Type: 
  Country: None (occurrence: None)
  Receive Date: 20090430
  Receipt Date: 20090428
  Transmission Date: 20091009
  Serious: No
  Sender: FDA-Public Use
  Company Number: 20096564

PATIENT
  Sex: Female

DRUGS (1)
  1. LIORESAL [Suspect]
     Indication: MUSCLE SPASTICITY
     Dosage: DAILY, INTRATHECAL

REACTIONS (5)
  - FATIGUE [None]
  - HAEMORRHAGE [None]
  - INFUSION SITE PAIN [None]
  - INFUSION SITE SWELLING [None]
  - MALAISE [None]
